FAERS Safety Report 13629567 (Version 1)
Quarter: 2017Q2

REPORT INFORMATION
  Report Type: Spontaneous
  Country: US (occurrence: US)
  Receive Date: 20170531
  Receipt Date: 20170531
  Transmission Date: 20170830
  Serious: No
  Sender: FDA-Public Use
  Company Number: US-ASTELLAS-1214744

PATIENT
  Age: 64 Year
  Sex: Female

DRUGS (7)
  1. TARCEVA [Suspect]
     Active Substance: ERLOTINIB HYDROCHLORIDE
     Route: 048
     Dates: start: 20161017
  2. TARCEVA [Suspect]
     Active Substance: ERLOTINIB HYDROCHLORIDE
     Indication: NON-SMALL CELL LUNG CANCER
     Route: 048
     Dates: start: 20130115
  3. VISTARIL [Concomitant]
     Active Substance: HYDROXYZINE PAMOATE
  4. TARCEVA [Suspect]
     Active Substance: ERLOTINIB HYDROCHLORIDE
     Route: 048
     Dates: start: 20121228
  5. XANAX [Concomitant]
     Active Substance: ALPRAZOLAM
  6. PAXIL [Concomitant]
     Active Substance: PAROXETINE HYDROCHLORIDE
  7. TARCEVA [Suspect]
     Active Substance: ERLOTINIB HYDROCHLORIDE
     Indication: LUNG NEOPLASM MALIGNANT
     Route: 048
     Dates: start: 20130407

REACTIONS (8)
  - Rash [Unknown]
  - Dry skin [Unknown]
  - Dizziness [Unknown]
  - Dyspepsia [Unknown]
  - Extra dose administered [Unknown]
  - Alopecia [Recovered/Resolved]
  - Neoplasm [Unknown]
  - Oral herpes [Unknown]

NARRATIVE: CASE EVENT DATE: 20130401
